FAERS Safety Report 11867142 (Version 1)
Quarter: 2015Q4

REPORT INFORMATION
  Report Type: Spontaneous
  Country: JP (occurrence: JP)
  Receive Date: 20151224
  Receipt Date: 20151224
  Transmission Date: 20160305
  Serious: Yes (Death, Hospitalization, Other)
  Sender: FDA-Public Use
  Company Number: GXJP2015JP001280

PATIENT
  Age: 61 Year
  Sex: Female
  Weight: 155 kg

DRUGS (5)
  1. DOCETAXEL. [Suspect]
     Active Substance: DOCETAXEL
     Indication: CHEMOTHERAPY
     Dosage: 75 MG/M2, UNK
     Route: 065
  2. CISPLATIN. [Suspect]
     Active Substance: CISPLATIN
     Indication: CHEMOTHERAPY
     Dosage: 40 MG/M2, UNK
     Route: 065
  3. CISPLATIN. [Suspect]
     Active Substance: CISPLATIN
     Dosage: 60 MG/M2, UNK
     Route: 065
  4. CARBOPLATIN INTRAVENOUS INFUSION [Suspect]
     Active Substance: CARBOPLATIN
     Indication: CHEMOTHERAPY
     Dosage: AUC 5
     Route: 065
  5. TOPOTECIN [Suspect]
     Active Substance: IRINOTECAN HYDROCHLORIDE
     Indication: CHEMOTHERAPY
     Dosage: 60 UNK, UNK
     Route: 065

REACTIONS (8)
  - Tumour embolism [Fatal]
  - Bradycardia [Unknown]
  - Pain in extremity [Recovering/Resolving]
  - Cerebral infarction [Fatal]
  - Back pain [Unknown]
  - Sensory disturbance [Recovering/Resolving]
  - Movement disorder [Recovering/Resolving]
  - Pain in extremity [Unknown]
